FAERS Safety Report 14926295 (Version 5)
Quarter: 2018Q4

REPORT INFORMATION
  Report Type: Report from Study
  Country: DE (occurrence: DE)
  Receive Date: 20180523
  Receipt Date: 20181116
  Transmission Date: 20190204
  Serious: Yes (Hospitalization)
  Sender: FDA-Public Use
  Company Number: DE-ROCHE-2095615

PATIENT
  Age: 60 Year
  Sex: Female
  Weight: 45 kg

DRUGS (10)
  1. COBIMETINIB. [Suspect]
     Active Substance: COBIMETINIB
     Indication: METASTATIC MALIGNANT MELANOMA
     Dosage: DOSE AS PER PROTOCOL: COBIMETINIB 60 MG (THREE, 20 MG TABLETS) PO ONCE A DAY (QD) ON DAYS 1 TO 21. D
     Route: 048
     Dates: start: 20170510
  2. LOPERAMID [Concomitant]
     Active Substance: LOPERAMIDE
     Indication: DIARRHOEA
     Route: 065
     Dates: start: 20170518
  3. VEMURAFENIB. [Suspect]
     Active Substance: VEMURAFENIB
     Indication: METASTATIC MALIGNANT MELANOMA
     Dosage: DATE OF MOST RECENT DOSE ON 22/NOV/2017?TOTAL NUMBER OF TABLETS OF LAST VEMURAFENIB ADMINISTERED PRI
     Route: 048
     Dates: start: 20170510
  4. FENISTIL (GERMANY) [Concomitant]
     Indication: RASH
     Route: 048
     Dates: start: 20170521
  5. MAGNESIA [Concomitant]
     Active Substance: MAGNESIUM HYDROXIDE
     Indication: MUSCLE SPASMS
     Route: 065
     Dates: start: 20180414
  6. PREDNITOP (GERMANY) [Concomitant]
     Indication: RASH
     Route: 065
     Dates: start: 20170531
  7. ENOXAPARIN [Concomitant]
     Active Substance: ENOXAPARIN
     Route: 065
     Dates: start: 20180321, end: 20180330
  8. GENTIANA [Concomitant]
     Route: 065
     Dates: start: 201803
  9. BEESWAX [Concomitant]
     Active Substance: YELLOW WAX
     Indication: SKIN FISSURES
  10. BLINDED ATEZOLIZUMAB [Suspect]
     Active Substance: ATEZOLIZUMAB
     Indication: METASTATIC MALIGNANT MELANOMA
     Dosage: BLINDED ATEZOLIZUMAB BY INTRAVENOUS (IV) INFUSION ON DAY 1 AND 15. DATE OF MOST RECENT DOSE ON 15/MA
     Route: 042
     Dates: start: 20170607

REACTIONS (1)
  - Bacterial infection [Recovered/Resolved]

NARRATIVE: CASE EVENT DATE: 20180319
